FAERS Safety Report 13897855 (Version 1)
Quarter: 2017Q3

REPORT INFORMATION
  Report Type: Spontaneous
  Country: GB (occurrence: GB)
  Receive Date: 20170823
  Receipt Date: 20170823
  Transmission Date: 20171127
  Serious: Yes (Other)
  Sender: FDA-Public Use
  Company Number: GB-PFIZER INC-2017358031

PATIENT
  Age: 40 Year
  Sex: Female

DRUGS (2)
  1. LYRICA [Suspect]
     Active Substance: PREGABALIN
     Dosage: 75 MG, UNK
  2. LYRICA [Suspect]
     Active Substance: PREGABALIN
     Dosage: 150 MG, UNK

REACTIONS (8)
  - Loss of consciousness [Unknown]
  - Feeling drunk [Unknown]
  - Withdrawal syndrome [Unknown]
  - Psychotic disorder [Unknown]
  - Amnesia [Unknown]
  - Agoraphobia [Unknown]
  - Anxiety [Unknown]
  - Suicidal ideation [Unknown]
